FAERS Safety Report 9131154 (Version 1)
Quarter: 2013Q1

REPORT INFORMATION
  Report Type: Spontaneous
  Country: US (occurrence: US)
  Receive Date: 20130301
  Receipt Date: 20130301
  Transmission Date: 20140127
  Serious: Yes (Hospitalization, Other)
  Sender: FDA-Public Use
  Company Number: US-PURDUE-USA-2013-0099165

PATIENT
  Age: 63 Year
  Sex: Female

DRUGS (2)
  1. OXYCONTIN (NDA 22-272) [Suspect]
     Indication: BACK PAIN
     Dosage: 80 MG, Q8H
     Route: 048
  2. OXYCONTIN (NDA 22-272) [Suspect]
     Indication: ARTHRALGIA

REACTIONS (2)
  - Knee arthroplasty [Unknown]
  - Surgery [Unknown]
